FAERS Safety Report 5055822-3 (Version None)
Quarter: 2006Q3

REPORT INFORMATION
  Report Type: 
  Country: None (occurrence: None)
  Receive Date: 20060718
  Receipt Date: 20060718
  Transmission Date: 20061208
  Serious: Yes (Other)
  Sender: FDA-Public Use
  Company Number: None

PATIENT
  Age: 65 Year
  Sex: Male
  Weight: 89.6 kg

DRUGS (2)
  1. THALIDOMIDE 100 MG [Suspect]
     Indication: MYELODYSPLASTIC SYNDROME
     Dosage: 100 MG ONCE DAILY PO
     Route: 048
  2. GENTAMICIN [Suspect]
     Indication: PYREXIA
     Dosage: 180 MG Q12H IV
     Route: 042
     Dates: start: 20060710, end: 20060711

REACTIONS (3)
  - BLOOD CREATININE INCREASED [None]
  - PYREXIA [None]
  - URINE OUTPUT DECREASED [None]
